FAERS Safety Report 6946767-X (Version None)
Quarter: 2010Q3

REPORT INFORMATION
  Report Type: 
  Country: None (occurrence: None)
  Receive Date: 20100825
  Receipt Date: 20100809
  Transmission Date: 20110219
  Serious: Yes (Death, Other)
  Sender: FDA-Public Use
  Company Number: 2010003331

PATIENT
  Age: 73 Year
  Sex: Male

DRUGS (12)
  1. TARCEVA [Suspect]
     Dosage: MG, QD, ORAL
     Route: 048
     Dates: start: 20100607, end: 20100701
  2. VALTREX [Concomitant]
  3. VIDARABINE [Concomitant]
  4. LOXONIN (LOXOPROFEN SODIUM) [Concomitant]
  5. MAGNESIUM OXIDE [Concomitant]
  6. MUCOSTA (REBAMIPIDE0 [Concomitant]
  7. SIGMART (NICORANDIL) [Concomitant]
  8. ISOSORBIDE MONONITRATE [Concomitant]
  9. OXYCONTIN [Concomitant]
  10. LANSOPRAZOLE [Concomitant]
  11. HARNAL (TAMSULOSIN HYDROCHLORIDE) [Concomitant]
  12. MORPHINE [Concomitant]

REACTIONS (6)
  - DECREASED APPETITE [None]
  - HAEMOPTYSIS [None]
  - INTERSTITIAL LUNG DISEASE [None]
  - NAUSEA [None]
  - RASH [None]
  - VOMITING [None]
